FAERS Safety Report 15273213 (Version 1)
Quarter: 2018Q3

REPORT INFORMATION
  Report Type: Spontaneous
  Country: FR (occurrence: FR)
  Receive Date: 20180813
  Receipt Date: 20180813
  Transmission Date: 20181010
  Serious: Yes (Other)
  Sender: FDA-Public Use
  Company Number: FR-009507513-1808FRA005265

PATIENT
  Age: 93 Year
  Sex: Male

DRUGS (1)
  1. FIDAXOMICIN [Suspect]
     Active Substance: FIDAXOMICIN
     Indication: CLOSTRIDIUM DIFFICILE COLITIS
     Dosage: 400 MG, QD
     Route: 048
     Dates: start: 20180709

REACTIONS (2)
  - Clostridium difficile colitis [Unknown]
  - Drug dispensing issue [Recovered/Resolved]

NARRATIVE: CASE EVENT DATE: 20180713
